FAERS Safety Report 6796237-7 (Version None)
Quarter: 2010Q2

REPORT INFORMATION
  Report Type: 
  Country: None (occurrence: None)
  Receive Date: 20100624
  Receipt Date: 20100624
  Transmission Date: 20101027
  Serious: Yes (Hospitalization)
  Sender: FDA-Public Use
  Company Number: None

PATIENT
  Age: 85 Year
  Sex: Male
  Weight: 82.6 kg

DRUGS (3)
  1. WARFARIN [Suspect]
     Indication: ATRIAL FIBRILLATION
     Dosage: 2 MG PM PO
     Route: 048
     Dates: start: 20100120, end: 20100523
  2. DALTEPARIN SODIUM [Suspect]
     Indication: ATRIAL FIBRILLATION
     Dosage: 18000 UNITS EVERY DAY SQ
     Route: 058
     Dates: start: 20100510, end: 20100523
  3. DALTEPARIN SODIUM [Suspect]
     Indication: CATHETERISATION CARDIAC
     Dosage: 18000 UNITS EVERY DAY SQ
     Route: 058
     Dates: start: 20100510, end: 20100523

REACTIONS (4)
  - EROSIVE DUODENITIS [None]
  - GASTRIC HAEMORRHAGE [None]
  - GASTRITIS [None]
  - WEIGHT DECREASED [None]
